FAERS Safety Report 11128643 (Version 2)
Quarter: 2015Q2

REPORT INFORMATION
  Report Type: Report from Study
  Country: AU (occurrence: None)
  Receive Date: 20150519
  Receipt Date: 20150601
  Transmission Date: 20150821
  Serious: Yes (Other)
  Sender: FDA-Public Use
  Company Number: 2015-11282

PATIENT
  Age: 64 Year
  Sex: Female

DRUGS (1)
  1. EYLEA [Suspect]
     Active Substance: AFLIBERCEPT
     Indication: NEOVASCULAR AGE-RELATED MACULAR DEGENERATION
     Dosage: 2 MG MILLIGRAM(S), LEFT EYE EVERY 11 WEEKS BUT RECENTLY BACK TO 4 WEEKLY, INTRAOCULAR
     Route: 031
     Dates: start: 20121210

REACTIONS (3)
  - Intraocular pressure increased [None]
  - Eye haemorrhage [None]
  - Visual impairment [None]

NARRATIVE: CASE EVENT DATE: 20150427
